FAERS Safety Report 4959663-4 (Version None)
Quarter: 2006Q1

REPORT INFORMATION
  Report Type: 
  Country: None (occurrence: None)
  Receive Date: 20060328
  Receipt Date: 20060316
  Transmission Date: 20060701
  Serious: Yes (Other)
  Sender: FDA-Public Use
  Company Number: 2006038141

PATIENT
  Age: 40 Year
  Sex: Female
  Weight: 83.0083 kg

DRUGS (3)
  1. MISOPROSTOL [Suspect]
     Indication: LABOUR INDUCTION
     Dosage: 2-1/2 TABLETS + ONE TABLET (2 TOTAL DOSES), ORAL
     Route: 048
     Dates: start: 20060221, end: 20060201
  2. PITOCIN [Concomitant]
  3. DITROPAN [Concomitant]

REACTIONS (5)
  - BLADDER PAIN [None]
  - CAESAREAN SECTION [None]
  - DRUG EXPOSURE DURING PREGNANCY [None]
  - HEART RATE INCREASED [None]
  - PYREXIA [None]
